FAERS Safety Report 16960927 (Version 7)
Quarter: 2020Q3

REPORT INFORMATION
  Report Type: Spontaneous
  Country: US (occurrence: US)
  Receive Date: 20191025
  Receipt Date: 20200810
  Transmission Date: 20201102
  Serious: Yes (Congenital Anomaly, Other)
  Sender: FDA-Public Use
  Company Number: NVSC2019US015264

PATIENT
  Age: 0 Day
  Sex: Male

DRUGS (1)
  1. ZOFRAN [Suspect]
     Active Substance: ONDANSETRON HYDROCHLORIDE
     Indication: FOETAL EXPOSURE DURING PREGNANCY
     Dosage: MOTHER DOSE: 08 MG, UNK
     Route: 064

REACTIONS (111)
  - Pulmonary oedema [Unknown]
  - Pneumonia [Unknown]
  - Cellulitis [Unknown]
  - Lung disorder [Unknown]
  - Renal hypertension [Unknown]
  - Cardiac murmur [Unknown]
  - Blood potassium increased [Unknown]
  - Sneezing [Unknown]
  - Teething [Unknown]
  - Ear pain [Unknown]
  - Ligament sprain [Unknown]
  - Influenza [Unknown]
  - Abscess limb [Unknown]
  - Migraine without aura [Unknown]
  - Renal aplasia [Unknown]
  - Hallucination [Unknown]
  - Bronchopulmonary dysplasia [Unknown]
  - Encephalopathy [Unknown]
  - Attention deficit hyperactivity disorder [Unknown]
  - Hypertension [Unknown]
  - Lactose intolerance [Unknown]
  - Gastrooesophageal reflux disease [Unknown]
  - Dysphemia [Unknown]
  - Hypotonia [Unknown]
  - Palpitations [Unknown]
  - Adenoidal hypertrophy [Unknown]
  - Oropharyngeal pain [Unknown]
  - Pain in extremity [Unknown]
  - Abdominal distension [Unknown]
  - Colitis [Unknown]
  - Renal hypoplasia [Unknown]
  - Neonatal respiratory distress syndrome [Unknown]
  - Cough variant asthma [Unknown]
  - Pharyngitis [Unknown]
  - Conjunctivitis [Unknown]
  - Dysuria [Unknown]
  - Eczema [Unknown]
  - Sleep disorder [Unknown]
  - Swelling [Unknown]
  - Eye contusion [Unknown]
  - Chills [Unknown]
  - Skin laceration [Unknown]
  - Atrial septal defect [Unknown]
  - Congenital vesicoureteric reflux [Recovered/Resolved]
  - Premature baby [Unknown]
  - Retinopathy of prematurity [Unknown]
  - Chronic kidney disease [Unknown]
  - Haematochezia [Unknown]
  - Choking [Unknown]
  - Dyspnoea [Unknown]
  - Headache [Unknown]
  - Abdominal pain upper [Unknown]
  - Developmental delay [Unknown]
  - Fall [Unknown]
  - Decreased appetite [Unknown]
  - Hypercholesterolaemia [Unknown]
  - Sinusitis [Unknown]
  - Posture abnormal [Unknown]
  - Congenital pulmonary hypertension [Unknown]
  - Single functional kidney [Unknown]
  - Reflux nephropathy [Unknown]
  - Small intestinal obstruction [Unknown]
  - Asthma [Unknown]
  - Ureteral disorder [Unknown]
  - Cough [Unknown]
  - Panic attack [Unknown]
  - Fatigue [Unknown]
  - Speech disorder [Unknown]
  - Diarrhoea [Unknown]
  - Foreign body reaction [Unknown]
  - Dental caries [Unknown]
  - Aphthous ulcer [Unknown]
  - Molluscum contagiosum [Unknown]
  - Abdominal pain [Unknown]
  - Overweight [Unknown]
  - Laryngeal oedema [Unknown]
  - Rhinorrhoea [Unknown]
  - Nasopharyngitis [Unknown]
  - Tonsillar hypertrophy [Unknown]
  - Tremor [Unknown]
  - Upper respiratory tract infection [Unknown]
  - Otitis media [Unknown]
  - Dermatitis [Unknown]
  - Seasonal allergy [Unknown]
  - Patent ductus arteriosus [Unknown]
  - Renal disorder [Unknown]
  - Borderline personality disorder [Unknown]
  - Wheezing [Unknown]
  - Psychomotor hyperactivity [Unknown]
  - Constipation [Unknown]
  - Viral infection [Unknown]
  - Iron deficiency anaemia [Unknown]
  - Breath odour [Unknown]
  - Pyrexia [Unknown]
  - White blood cell count increased [Unknown]
  - Epistaxis [Unknown]
  - Obstructive airways disorder [Unknown]
  - Impetigo [Unknown]
  - Cerebral palsy [Unknown]
  - Foetal exposure during pregnancy [Unknown]
  - Injury [Unknown]
  - Generalised anxiety disorder [Unknown]
  - Renal hypertrophy [Unknown]
  - Social anxiety disorder [Unknown]
  - Vomiting [Unknown]
  - Erythema [Unknown]
  - Gastroenteritis [Unknown]
  - Balanoposthitis [Unknown]
  - Rash [Unknown]
  - Otitis externa [Unknown]
  - Myopia [Unknown]

NARRATIVE: CASE EVENT DATE: 20050422
